FAERS Safety Report 21698462 (Version 5)
Quarter: 2023Q1

REPORT INFORMATION
  Report Type: Spontaneous
  Country: DK (occurrence: DK)
  Receive Date: 20221208
  Receipt Date: 20230120
  Transmission Date: 20230418
  Serious: Yes (Other)
  Sender: FDA-Public Use
  Company Number: DK-PFIZER INC-PV202200113219

PATIENT
  Age: 42 Year
  Sex: Male

DRUGS (1)
  1. AZITHROMYCIN [Suspect]
     Active Substance: AZITHROMYCIN
     Indication: Gastroenteritis
     Dosage: 500 MG, 3X/DAY (FOR THREE DAYS)
     Route: 048

REACTIONS (3)
  - Plantar fasciitis [Recovering/Resolving]
  - Gait disturbance [Recovered/Resolved]
  - Off label use [Unknown]
